FAERS Safety Report 12882712 (Version 1)
Quarter: 2016Q4

REPORT INFORMATION
  Report Type: Spontaneous
  Country: SA (occurrence: SA)
  Receive Date: 20161025
  Receipt Date: 20161025
  Transmission Date: 20170207
  Serious: Yes (Hospitalization)
  Sender: FDA-Public Use
  Company Number: SA-IPCA LABORATORIES LIMITED-IPC201610-000892

PATIENT
  Age: 64 Year
  Sex: Male
  Weight: 87 kg

DRUGS (11)
  1. ASPIRIN. [Concomitant]
     Active Substance: ASPIRIN
  2. METOCLOPRAMIDE HYDROCHLORIDE. [Suspect]
     Active Substance: METOCLOPRAMIDE HYDROCHLORIDE
     Indication: NAUSEA
     Route: 042
  3. HYDROCHLOROTHIAZIDE. [Concomitant]
     Active Substance: HYDROCHLOROTHIAZIDE
  4. OLANZAPINE/FLUOXETINE [Interacting]
     Active Substance: FLUOXETINE HYDROCHLORIDE\OLANZAPINE
  5. LINEZOLID. [Concomitant]
     Active Substance: LINEZOLID
     Indication: DIABETIC FOOT INFECTION
     Route: 042
  6. LISINOPRIL. [Concomitant]
     Active Substance: LISINOPRIL
  7. GLYBURIDE. [Concomitant]
     Active Substance: GLYBURIDE
  8. MOXIFLOXACIN. [Concomitant]
     Active Substance: MOXIFLOXACIN
     Indication: DIABETIC FOOT INFECTION
     Route: 042
  9. DIMENHYDRINATE. [Concomitant]
     Active Substance: DIMENHYDRINATE
     Indication: NAUSEA
     Route: 042
  10. LINEZOLID. [Interacting]
     Active Substance: LINEZOLID
  11. METFORMIN [Concomitant]
     Active Substance: METFORMIN HYDROCHLORIDE

REACTIONS (3)
  - Neuroleptic malignant syndrome [Recovering/Resolving]
  - Drug interaction [Unknown]
  - Serotonin syndrome [Recovering/Resolving]
